FAERS Safety Report 10463619 (Version 1)
Quarter: 2014Q3

REPORT INFORMATION
  Report Type: Spontaneous
  Country: US (occurrence: US)
  Receive Date: 20140919
  Receipt Date: 20140919
  Transmission Date: 20150326
  Serious: No
  Sender: FDA-Public Use
  Company Number: US-ELI_LILLY_AND_COMPANY-US201408007680

PATIENT
  Sex: Male

DRUGS (5)
  1. AMLOD [Concomitant]
  2. BENZEDRINE [Concomitant]
     Active Substance: AMPHETAMINE SULFATE
     Dosage: 10 MG, UNK
  3. CIALIS [Suspect]
     Active Substance: TADALAFIL
     Indication: ERECTILE DYSFUNCTION
     Dosage: 5 MG, UNKNOWN
     Route: 065
     Dates: start: 201404
  4. CIALIS [Suspect]
     Active Substance: TADALAFIL
     Dosage: 20 MG, UNKNOWN
     Route: 065
  5. MELATONIN [Concomitant]
     Active Substance: MELATONIN
     Dosage: 3 MG, UNK

REACTIONS (3)
  - Prostatectomy [Unknown]
  - Wrong technique in drug usage process [Unknown]
  - Drug ineffective [Unknown]
